FAERS Safety Report 19405680 (Version 1)
Quarter: 2021Q2

REPORT INFORMATION
  Report Type: Spontaneous
  Country: US (occurrence: US)
  Receive Date: 20210611
  Receipt Date: 20210611
  Transmission Date: 20210717
  Serious: Yes (Other)
  Sender: FDA-Public Use
  Company Number: US-GLAXOSMITHKLINE-US2021GSK122996

PATIENT
  Sex: Female

DRUGS (8)
  1. ZANTAC [Suspect]
     Active Substance: RANITIDINE HYDROCHLORIDE
     Indication: COLITIS
  2. RANITIDINE. [Suspect]
     Active Substance: RANITIDINE
     Indication: GASTROINTESTINAL HAEMORRHAGE
     Dosage: 150 MG, QD
     Route: 065
     Dates: start: 198501, end: 199512
  3. RANITIDINE. [Suspect]
     Active Substance: RANITIDINE
     Indication: GASTROINTESTINAL HAEMORRHAGE
     Dosage: 150 MG, QD
     Route: 065
     Dates: start: 198501, end: 199512
  4. ZANTAC [Suspect]
     Active Substance: RANITIDINE HYDROCHLORIDE
     Indication: COLITIS
  5. ZANTAC [Suspect]
     Active Substance: RANITIDINE HYDROCHLORIDE
     Indication: GASTROINTESTINAL HAEMORRHAGE
     Dosage: 150 MG, QD
     Route: 065
     Dates: start: 199501, end: 202012
  6. ZANTAC [Suspect]
     Active Substance: RANITIDINE HYDROCHLORIDE
     Indication: GASTROINTESTINAL HAEMORRHAGE
     Dosage: 150 MG, QD
     Route: 065
     Dates: start: 199501, end: 202012
  7. RANITIDINE. [Suspect]
     Active Substance: RANITIDINE
     Indication: COLITIS
  8. RANITIDINE. [Suspect]
     Active Substance: RANITIDINE
     Indication: COLITIS

REACTIONS (1)
  - Breast cancer [Unknown]
